FAERS Safety Report 8759385 (Version 4)
Quarter: 2012Q4

REPORT INFORMATION
  Report Type: 
  Country: JP (occurrence: JP)
  Receive Date: 20120829
  Receipt Date: 20121105
  Transmission Date: 20130627
  Serious: Yes (Death, Hospitalization)
  Sender: FDA-Public Use
  Company Number: JP-TEVA-355837USA

PATIENT
  Age: 72 Year
  Sex: Male
  Weight: 50.7 kg

DRUGS (8)
  1. TREANDA [Suspect]
     Indication: MANTLE CELL LYMPHOMA
     Route: 042
     Dates: start: 20110705
  2. SULFAMETHOXAZOLE/TRIMETHOPRIM [Concomitant]
     Indication: INFECTION PROPHYLAXIS
     Dosage: 1 Tablet Daily;
     Dates: start: 20110705, end: 20111118
  3. ACICLOVIR [Concomitant]
     Indication: PROPHYLAXIS
     Dates: start: 20110705, end: 20110726
  4. ALLOPURINOL [Concomitant]
     Indication: PROPHYLAXIS
     Dates: start: 20110705, end: 20110726
  5. REBAMIPIDE [Concomitant]
     Indication: GASTRITIS PROPHYLAXIS
     Dates: start: 20110705, end: 20110726
  6. GLIMEPIRIDE [Concomitant]
     Indication: DIABETES MELLITUS
     Dates: start: 20080307, end: 20120505
  7. SITAGLIPTIN PHOSPHATE HYDRATE [Concomitant]
     Indication: DIABETES MELLITUS
     Dates: start: 20110706, end: 20110803
  8. VOGLIBOSE [Concomitant]
     Indication: DIABETES MELLITUS
     Dates: start: 20081211, end: 20120505

REACTIONS (5)
  - Acute myeloid leukaemia [Fatal]
  - Cytomegalovirus test positive [Recovering/Resolving]
  - Pyrexia [Recovering/Resolving]
  - Lymphocyte count decreased [Recovering/Resolving]
  - Neutrophil count decreased [Recovering/Resolving]
